FAERS Safety Report 20627778 (Version 5)
Quarter: 2022Q3

REPORT INFORMATION
  Report Type: Spontaneous
  Country: JP (occurrence: JP)
  Receive Date: 20220323
  Receipt Date: 20220715
  Transmission Date: 20221027
  Serious: Yes (Hospitalization, Other)
  Sender: FDA-Public Use
  Company Number: JP-GLAXOSMITHKLINE-JP2022JPN047239

PATIENT

DRUGS (12)
  1. SOTROVIMAB [Suspect]
     Active Substance: SOTROVIMAB
     Indication: COVID-19
     Dosage: 500 MG/100ML/30MIN, SINGLE DOSE
     Route: 041
     Dates: start: 20220316, end: 20220316
  2. SOTROVIMAB [Suspect]
     Active Substance: SOTROVIMAB
     Indication: SARS-CoV-2 test positive
  3. REXULTI [Concomitant]
     Active Substance: BREXPIPRAZOLE
     Indication: Alcoholism
     Dosage: 0.5 MG, QD AFTER DINNER
     Route: 048
     Dates: start: 20220311
  4. JANUVIA TABLET (SITAGLIPTIN PHOSPHATE HYDRATE) [Concomitant]
     Indication: Diabetes mellitus
     Dosage: 50 MG, QD AFTER BREAKFAST
     Route: 048
     Dates: start: 20220312
  5. FUROSEMIDE [Concomitant]
     Active Substance: FUROSEMIDE
     Indication: Oedema
     Dosage: 40 MG, QD AFTER BREAKFAST
     Route: 048
     Dates: start: 20220312
  6. URSODEOXYCHOLIC ACID TABLETS [Concomitant]
     Indication: Hepatic function abnormal
     Dosage: 100 MG, TID
     Route: 048
     Dates: start: 20220311
  7. LACTULOSE [Concomitant]
     Active Substance: LACTULOSE
     Indication: Hepatic encephalopathy
     Dosage: 10 ML, TID
     Route: 048
     Dates: start: 20220311
  8. MAGNESIUM OXIDE [Concomitant]
     Active Substance: MAGNESIUM OXIDE
     Dosage: 250 MG, TID
     Route: 048
     Dates: start: 20220311
  9. KYLIT [Concomitant]
     Indication: Alcoholism
     Dosage: 500 ML, IN LATE AFTERNOON
     Route: 041
     Dates: start: 20220311, end: 20220317
  10. ADELAVIN-NO.9 [Concomitant]
     Indication: Alcoholism
     Dosage: 2 ML, IN LATE AFTERNOON
     Route: 042
     Dates: start: 20220311, end: 20220317
  11. THIAMINE CHLORIDE HYDROCHLORIDE [Concomitant]
     Indication: Alcoholism
     Dosage: 1000 MG, IN LATE AFTERNOON
     Route: 042
     Dates: start: 20220311, end: 20220317
  12. GLUTATHIONE [Concomitant]
     Active Substance: GLUTATHIONE
     Indication: Alcoholism
     Dosage: 200 MG, IN LATE AFTERNOON
     Route: 042
     Dates: start: 20220311, end: 20220317

REACTIONS (4)
  - Pyrexia [Recovered/Resolved]
  - Tremor [Recovered/Resolved]
  - Chills [Recovered/Resolved]
  - COVID-19 [Recovered/Resolved]

NARRATIVE: CASE EVENT DATE: 20220316
